FAERS Safety Report 9098505 (Version 1)
Quarter: 2013Q1

REPORT INFORMATION
  Report Type: Spontaneous
  Country: FR (occurrence: FR)
  Receive Date: 20130213
  Receipt Date: 20130213
  Transmission Date: 20140127
  Serious: Yes (Life-Threatening, Hospitalization)
  Sender: FDA-Public Use
  Company Number: FR-PFIZER INC-2013053035

PATIENT
  Age: 65 Year
  Sex: Female

DRUGS (3)
  1. FLUOROURACILE PFIZER [Suspect]
     Indication: BREAST CANCER
     Dosage: 6 COURSES
     Route: 042
     Dates: start: 20110111, end: 20110505
  2. EPIRUBICIN [Suspect]
     Indication: BREAST CANCER
     Dosage: 6 COURSES
     Route: 042
     Dates: start: 20110111, end: 20110505
  3. ENDOXAN [Suspect]
     Indication: BREAST CANCER
     Dosage: 6 COURSES
     Route: 042
     Dates: start: 20110111, end: 20110505

REACTIONS (2)
  - Second primary malignancy [Not Recovered/Not Resolved]
  - Acute myeloid leukaemia [Not Recovered/Not Resolved]
